FAERS Safety Report 11212495 (Version 1)
Quarter: 2015Q2

REPORT INFORMATION
  Report Type: Spontaneous
  Country: US (occurrence: None)
  Receive Date: 20150622
  Receipt Date: 20150622
  Transmission Date: 20150821
  Serious: Yes (Other)
  Sender: FDA-Public Use
  Company Number: None

PATIENT
  Age: 41 Year
  Sex: Female

DRUGS (1)
  1. NIFEDIPINE. [Suspect]
     Active Substance: NIFEDIPINE
     Route: 048

REACTIONS (4)
  - Swelling [None]
  - Dyspnoea [None]
  - Urticaria [None]
  - Dizziness [None]

NARRATIVE: CASE EVENT DATE: 20150619
